FAERS Safety Report 22057014 (Version 6)
Quarter: 2024Q1

REPORT INFORMATION
  Report Type: Spontaneous
  Country: US (occurrence: US)
  Receive Date: 20230303
  Receipt Date: 20240211
  Transmission Date: 20240409
  Serious: Yes (Other)
  Sender: FDA-Public Use
  Company Number: US-SA-SAC20230302000569

PATIENT
  Age: 72 Year
  Sex: Female

DRUGS (1)
  1. DUPIXENT [Suspect]
     Active Substance: DUPILUMAB
     Indication: Dermatitis atopic
     Dosage: 300 MG (FREQUENCY: OTHER)
     Route: 058
     Dates: start: 202212, end: 20230514

REACTIONS (11)
  - Cataract [Unknown]
  - Diarrhoea [Unknown]
  - Dyspepsia [Unknown]
  - Headache [Recovered/Resolved]
  - Nausea [Unknown]
  - Abdominal discomfort [Recovered/Resolved]
  - Injection site discolouration [Unknown]
  - Condition aggravated [Unknown]
  - Eczema [Unknown]
  - Conjunctivitis [Unknown]
  - Injection site bruising [Unknown]
